FAERS Safety Report 23461383 (Version 1)
Quarter: 2024Q1

REPORT INFORMATION
  Report Type: Spontaneous
  Country: CN (occurrence: CN)
  Receive Date: 20240131
  Receipt Date: 20240131
  Transmission Date: 20240409
  Serious: Yes (Disabling)
  Sender: FDA-Public Use
  Company Number: CN-PFIZER INC-PV202400013109

PATIENT
  Age: 7 Year
  Sex: Female
  Weight: 28.5 kg

DRUGS (5)
  1. CYTARABINE [Suspect]
     Active Substance: CYTARABINE
     Indication: Acute lymphocytic leukaemia
     Dosage: 0.1 G, 1X/DAY
     Route: 041
     Dates: start: 20231226, end: 20231226
  2. METHOTREXATE [Suspect]
     Active Substance: METHOTREXATE
     Indication: Leukaemia
     Dosage: 5000 MG/M2, 1X/DAY
     Route: 041
     Dates: start: 20231226, end: 20231226
  3. METHOTREXATE [Suspect]
     Active Substance: METHOTREXATE
     Dosage: 0.1 G, 1X/DAY
     Route: 037
     Dates: start: 20231226, end: 20231226
  4. SODIUM CHLORIDE [Concomitant]
     Active Substance: SODIUM CHLORIDE
     Indication: Vehicle solution use
     Dosage: 500 ML, 1X/DAY
     Route: 041
     Dates: start: 20231226, end: 20231226
  5. LIDOCAINE HYDROCHLORIDE [Concomitant]
     Active Substance: LIDOCAINE HYDROCHLORIDE
     Indication: Anaesthesia
     Dosage: 0.1 G, 1X/DAY
     Dates: start: 20231226, end: 20231226

REACTIONS (3)
  - Acute kidney injury [Recovering/Resolving]
  - Liver injury [Recovering/Resolving]
  - Myocardial injury [Recovering/Resolving]

NARRATIVE: CASE EVENT DATE: 20240103
